FAERS Safety Report 8911026 (Version 2)
Quarter: 2013Q1

REPORT INFORMATION
  Report Type: Spontaneous
  Country: DK (occurrence: DK)
  Receive Date: 20121115
  Receipt Date: 20130301
  Transmission Date: 20140127
  Serious: Yes (Hospitalization, Other)
  Sender: FDA-Public Use
  Company Number: DK-JNJFOC-20120900378

PATIENT
  Sex: Female

DRUGS (13)
  1. XEPLION [Suspect]
     Indication: SCHIZOPHRENIA
     Route: 030
  2. XEPLION [Suspect]
     Indication: SCHIZOPHRENIA
     Route: 030
     Dates: start: 20120905
  3. XEPLION [Suspect]
     Indication: SCHIZOPHRENIA
     Dosage: ONCE MONTHLY
     Route: 030
     Dates: start: 20120824
  4. XEPLION [Suspect]
     Indication: SCHIZOPHRENIA
     Route: 030
     Dates: start: 20120814
  5. XEPLION [Suspect]
     Indication: SCHIZOPHRENIA
     Route: 030
     Dates: start: 20120807
  6. XEPLION [Suspect]
     Indication: SCHIZOPHRENIA
     Route: 030
     Dates: start: 20121003
  7. SEROQUEL [Suspect]
     Indication: SCHIZOPHRENIA
     Route: 065
  8. SEROQUEL [Suspect]
     Indication: SCHIZOPHRENIA
     Dosage: FOR 1 WEEK
     Route: 065
  9. SEROQUEL [Suspect]
     Indication: SCHIZOPHRENIA
     Dosage: 10 WEEK
     Route: 065
  10. SEROQUEL [Suspect]
     Indication: SCHIZOPHRENIA
     Route: 065
  11. SEROQUEL [Suspect]
     Indication: SCHIZOPHRENIA
     Dosage: AT NIGHT
     Route: 065
  12. RISPERDAL [Concomitant]
     Indication: PRODUCT USED FOR UNKNOWN INDICATION
     Dosage: AT NIGHT FOR 14 DAYS.
     Route: 048
  13. RISPERDAL [Concomitant]
     Indication: PRODUCT USED FOR UNKNOWN INDICATION
     Dosage: AT NIGHT
     Route: 048

REACTIONS (12)
  - Withdrawal syndrome [Recovering/Resolving]
  - Tremor [Recovering/Resolving]
  - Schizophrenia [Recovering/Resolving]
  - Lethargy [Recovering/Resolving]
  - Feeling abnormal [Recovering/Resolving]
  - Nausea [Recovering/Resolving]
  - Abdominal pain upper [Recovering/Resolving]
  - Blood pressure increased [Recovering/Resolving]
  - Heart rate increased [Recovering/Resolving]
  - Hyperhidrosis [Recovering/Resolving]
  - Body temperature increased [Recovering/Resolving]
  - Inappropriate schedule of drug administration [Unknown]
